FAERS Safety Report 4515932-3 (Version None)
Quarter: 2004Q4

REPORT INFORMATION
  Report Type: 
  Country: None (occurrence: None)
  Receive Date: 20041107
  Receipt Date: 20041124
  Transmission Date: 20050328
  Serious: Yes (Hospitalization)
  Sender: FDA-Public Use
  Company Number: 04-11-1647

PATIENT
  Age: 48 Year
  Sex: Female

DRUGS (2)
  1. CLOZAPINE [Suspect]
     Indication: SCHIZOPHRENIA, PARANOID TYPE
     Dosage: 50-500MG QD ORAL
     Route: 048
     Dates: start: 19991001, end: 20041101
  2. ANTIBIOTICS [Suspect]
     Indication: OSTEOMYELITIS

REACTIONS (2)
  - DRUG HYPERSENSITIVITY [None]
  - OSTEOMYELITIS [None]
